FAERS Safety Report 22297832 (Version 1)
Quarter: 2023Q2

REPORT INFORMATION
  Report Type: Spontaneous
  Country: US (occurrence: US)
  Receive Date: 20230509
  Receipt Date: 20230509
  Transmission Date: 20230722
  Serious: Yes (Hospitalization)
  Sender: FDA-Public Use
  Company Number: US-JNJFOC-20230513685

PATIENT
  Age: 26 Year
  Sex: Male
  Weight: 106.6 kg

DRUGS (1)
  1. LOPERAMIDE HYDROCHLORIDE [Suspect]
     Active Substance: LOPERAMIDE HYDROCHLORIDE
     Indication: Diarrhoea
     Dosage: MULTIPLE TIMES A DAY
     Route: 065

REACTIONS (2)
  - Heat stroke [Recovered/Resolved]
  - Acute kidney injury [Recovered/Resolved]
